FAERS Safety Report 24710488 (Version 1)
Quarter: 2024Q4

REPORT INFORMATION
  Report Type: Spontaneous
  Country: US (occurrence: US)
  Receive Date: 20241209
  Receipt Date: 20241209
  Transmission Date: 20250115
  Serious: Yes (Other)
  Sender: ALEXION PHARMACEUTICALS
  Company Number: US-ASTRAZENECA-24US0057411

PATIENT
  Age: 66 Year
  Weight: 85.73 kg

DRUGS (20)
  1. LYNPARZA [Suspect]
     Active Substance: OLAPARIB
     Route: 065
  2. LYNPARZA [Suspect]
     Active Substance: OLAPARIB
     Route: 065
  3. LYNPARZA [Suspect]
     Active Substance: OLAPARIB
     Route: 065
  4. LYNPARZA [Suspect]
     Active Substance: OLAPARIB
     Route: 065
  5. VUDALIMAB [Concomitant]
     Active Substance: VUDALIMAB
     Dosage: 10 MILLIGRAM/KILOGRAM, UNK
     Route: 042
  6. VUDALIMAB [Concomitant]
     Active Substance: VUDALIMAB
     Dosage: 10 MILLIGRAM/KILOGRAM, UNK
  7. DOCETAXEL [Suspect]
     Active Substance: DOCETAXEL
     Dosage: 75 MILLIGRAM/SQ. METER, UNK
     Route: 042
  8. DOCETAXEL [Suspect]
     Active Substance: DOCETAXEL
     Dosage: 75 MILLIGRAM/SQ. METER, UNK
  9. DULOXETINE [Concomitant]
     Active Substance: DULOXETINE
     Dosage: UNK
     Route: 065
  10. DULOXETINE [Concomitant]
     Active Substance: DULOXETINE
     Dosage: UNK
     Route: 065
  11. GABAPENTIN [Concomitant]
     Active Substance: GABAPENTIN
     Dosage: UNK
     Route: 065
  12. GABAPENTIN [Concomitant]
     Active Substance: GABAPENTIN
     Dosage: UNK
     Route: 065
  13. DECADRON [Concomitant]
     Active Substance: DEXAMETHASONE
     Route: 065
  14. DECADRON [Concomitant]
     Active Substance: DEXAMETHASONE
     Route: 065
  15. REVATIO [Concomitant]
     Active Substance: SILDENAFIL CITRATE
     Dosage: UNK
     Route: 065
  16. REVATIO [Concomitant]
     Active Substance: SILDENAFIL CITRATE
     Dosage: UNK
     Route: 065
  17. TAMSULOSIN [Concomitant]
     Active Substance: TAMSULOSIN
     Dosage: UNK
     Route: 065
  18. TAMSULOSIN [Concomitant]
     Active Substance: TAMSULOSIN
     Dosage: UNK
     Route: 065
  19. Best choice dual action acetaminophen and ibuprofen [Concomitant]
     Dosage: UNK
     Route: 065
  20. Best choice dual action acetaminophen and ibuprofen [Concomitant]
     Dosage: UNK
     Route: 065

REACTIONS (15)
  - Neutrophil count decreased [Recovered/Resolved]
  - Neuropathy peripheral [Unknown]
  - Hypokalaemia [Unknown]
  - Anaemia [Unknown]
  - Myalgia [Unknown]
  - Weight decreased [Unknown]
  - Blood lactate dehydrogenase increased [Unknown]
  - Infusion related reaction [Unknown]
  - Pruritus [Unknown]
  - White blood cell count decreased [Unknown]
  - Neutrophil count decreased [Unknown]
  - Platelet count decreased [Unknown]
  - Peripheral sensory neuropathy [Unknown]
  - Peroneal nerve palsy [Unknown]
  - Cellulitis [Unknown]
